FAERS Safety Report 9329034 (Version 1)
Quarter: 2013Q2

REPORT INFORMATION
  Report Type: Spontaneous
  Country: US (occurrence: US)
  Receive Date: 20130604
  Receipt Date: 20130604
  Transmission Date: 20140414
  Serious: Yes (Other)
  Sender: FDA-Public Use
  Company Number: US-SANOFI-AVENTIS-2012SA072042

PATIENT
  Age: 69 Year
  Sex: Female
  Weight: 85.27 kg

DRUGS (10)
  1. LANTUS [Suspect]
     Indication: TYPE 2 DIABETES MELLITUS
     Dosage: DOSE:10 UNIT(S)
     Route: 058
     Dates: start: 200710
  2. LANTUS [Suspect]
     Indication: TYPE 2 DIABETES MELLITUS
     Dosage: DOSE:10 UNIT(S)
     Route: 058
     Dates: start: 200710
  3. METFORMIN [Concomitant]
  4. LISINOPRIL [Concomitant]
     Indication: HYPERTENSION
     Route: 065
     Dates: end: 20120802
  5. LOSARTAN [Concomitant]
     Indication: HYPERTENSION
     Dates: start: 20120806
  6. DIOVANE [Concomitant]
     Indication: HYPERTENSION
     Dates: start: 20120805
  7. CLONIDINE [Concomitant]
     Indication: HYPERTENSION
     Dates: start: 20120808
  8. CARVEDILOL [Concomitant]
     Indication: HYPERTENSION
     Dosage: 6.25 THEN 12.5 MG
     Dates: start: 20120911
  9. AMLODIPINE [Concomitant]
     Indication: HYPERTENSION
     Dates: start: 20120904
  10. LABETALOL [Concomitant]
     Indication: HYPERTENSION
     Dates: start: 20121002

REACTIONS (6)
  - Hypersensitivity [Recovering/Resolving]
  - Angioedema [Unknown]
  - Urticaria [Unknown]
  - Asthenia [Unknown]
  - Nervousness [Unknown]
  - Fungal infection [Unknown]
